FAERS Safety Report 19078600 (Version 1)
Quarter: 2021Q1

REPORT INFORMATION
  Report Type: Report from Study
  Country: BR (occurrence: BR)
  Receive Date: 20210331
  Receipt Date: 20210331
  Transmission Date: 20210420
  Serious: Yes (Life-Threatening, Hospitalization, Other)
  Sender: FDA-Public Use
  Company Number: NVSC2021BR071312

PATIENT
  Age: 69 Year
  Sex: Male

DRUGS (1)
  1. DIOVAN AMLO FIX [Suspect]
     Active Substance: AMLODIPINE\VALSARTAN
     Indication: HYPERTENSION
     Dosage: 320+5 (STARTED MORE THAN 10 YEARS AGO AND STOPPED 5 OR 6 MONTHS AGO)
     Route: 065

REACTIONS (21)
  - Urinary tract infection [Unknown]
  - Iron deficiency [Unknown]
  - Blood pressure decreased [Unknown]
  - C-reactive protein increased [Unknown]
  - Near death experience [Unknown]
  - Blood creatinine increased [Unknown]
  - Anaemia [Unknown]
  - Inappropriate schedule of product administration [Unknown]
  - Pain [Unknown]
  - Blood cholesterol increased [Unknown]
  - Infection [Unknown]
  - Thrombosis [Unknown]
  - Full blood count decreased [Unknown]
  - C-reactive protein decreased [Unknown]
  - Spinal cord infection [Unknown]
  - Illness [Unknown]
  - Spinal pain [Unknown]
  - Pulmonary embolism [Unknown]
  - Herpes zoster [Unknown]
  - Movement disorder [Unknown]
  - Blood pressure increased [Unknown]

NARRATIVE: CASE EVENT DATE: 20201221
